FAERS Safety Report 7132796-2 (Version None)
Quarter: 2010Q4

REPORT INFORMATION
  Report Type: 
  Country: None (occurrence: None)
  Receive Date: 20101202
  Receipt Date: 20101124
  Transmission Date: 20110411
  Serious: No
  Sender: FDA-Public Use
  Company Number: US-PFIZER INC-2010157299

PATIENT
  Sex: Female
  Weight: 51.2 kg

DRUGS (3)
  1. PRISTIQ [Suspect]
     Indication: MOOD SWINGS
     Dosage: 50 MG, DAILY
     Route: 048
     Dates: start: 20101124
  2. SYNTHROID [Concomitant]
     Indication: THYROID DISORDER
     Dosage: 75 MG, UNK
  3. CADUET [Concomitant]
     Indication: HYPERTENSION
     Dosage: UNK

REACTIONS (2)
  - DRUG DISPENSING ERROR [None]
  - FATIGUE [None]
